FAERS Safety Report 11089106 (Version 1)
Quarter: 2015Q2

REPORT INFORMATION
  Report Type: Spontaneous
  Country: BR (occurrence: BR)
  Receive Date: 20150505
  Receipt Date: 20150505
  Transmission Date: 20150821
  Serious: Yes (Other)
  Sender: FDA-Public Use
  Company Number: PHHY2015BR051137

PATIENT
  Age: 50 Year
  Sex: Female

DRUGS (1)
  1. CIPROFLOXACIN SANDOZ [Suspect]
     Active Substance: CIPROFLOXACIN
     Indication: PHARYNGITIS
     Dosage: 500 MG, Q12H
     Route: 048
     Dates: start: 20150422

REACTIONS (3)
  - Diarrhoea [Unknown]
  - Biliary tract disorder [Unknown]
  - Faeces discoloured [Unknown]
